FAERS Safety Report 4266770-0 (Version None)
Quarter: 2004Q1

REPORT INFORMATION
  Report Type: 
  Country: None (occurrence: None)
  Receive Date: 20040108
  Receipt Date: 20020731
  Transmission Date: 20041129
  Serious: Yes (Hospitalization, Other)
  Sender: FDA-Public Use
  Company Number: US-BRISTOL-MYERS SQUIBB COMPANY-11975299

PATIENT
  Age: 63 Year
  Sex: Female

DRUGS (17)
  1. CARDIOLITE [Suspect]
     Indication: CARDIAC STRESS TEST
     Route: 042
     Dates: start: 20020723, end: 20020725
  2. ADENOSINE [Suspect]
     Indication: CARDIAC STRESS TEST
     Route: 042
     Dates: start: 20020723
  3. ASPIRIN [Concomitant]
  4. GLIPIZIDE [Concomitant]
  5. GLUCOPHAGE [Concomitant]
  6. ACTOS [Concomitant]
  7. TOPROL-XL [Concomitant]
  8. ATARAX [Concomitant]
  9. VASOTEC [Concomitant]
  10. LASIX [Concomitant]
  11. POTASSIUM CHLORIDE [Concomitant]
  12. CALCIUM [Concomitant]
  13. VITAMIN E [Concomitant]
  14. FOLATE SODIUM [Concomitant]
  15. MAGNESIUM [Concomitant]
  16. MIACALCIN [Concomitant]
     Route: 045
  17. VITAMIN B-12 [Concomitant]

REACTIONS (1)
  - ANGIONEUROTIC OEDEMA [None]
